FAERS Safety Report 7558823-6 (Version None)
Quarter: 2011Q2

REPORT INFORMATION
  Report Type: 
  Country: None (occurrence: None)
  Receive Date: 20110613
  Receipt Date: 20110527
  Transmission Date: 20111010
  Serious: Yes (Other)
  Sender: FDA-Public Use
  Company Number: 2011NA000045

PATIENT
  Age: 42 Year
  Sex: Male

DRUGS (11)
  1. WARFARIN SODIUM [Suspect]
     Indication: DEEP VEIN THROMBOSIS
  2. CITALOPRAM HYDROBROMIDE [Concomitant]
     Indication: DEPRESSION
  3. CITALOPRAM HYDROBROMIDE [Concomitant]
     Indication: SCHIZOPHRENIA
  4. DICLOFENAC SODIUM [Suspect]
     Indication: PAIN IN EXTREMITY
  5. ASPIRIN [Suspect]
     Indication: DEEP VEIN THROMBOSIS
  6. FENOFIBRATE [Suspect]
     Indication: DYSLIPIDAEMIA
  7. ATORVASTATIN [Suspect]
     Indication: DYSLIPIDAEMIA
  8. QUETIAPINE FUMARATE [Suspect]
     Indication: SCHIZOPHRENIA
  9. QUETIAPINE FUMARATE [Suspect]
     Indication: DEPRESSION
  10. PROPRANOLOL [Suspect]
     Indication: DEPRESSION
  11. PROPRANOLOL [Suspect]
     Indication: SCHIZOPHRENIA

REACTIONS (6)
  - PARAPARESIS [None]
  - EXTRADURAL HAEMATOMA [None]
  - DRUG INTERACTION [None]
  - BACK PAIN [None]
  - SKIN HAEMORRHAGE [None]
  - LOSS OF BLADDER SENSATION [None]
